FAERS Safety Report 8738607 (Version 2)
Quarter: 2015Q3

REPORT INFORMATION
  Report Type: Spontaneous
  Country: US (occurrence: US)
  Receive Date: 20120823
  Receipt Date: 20150921
  Transmission Date: 20151125
  Serious: Yes (Hospitalization, Other)
  Sender: FDA-Public Use
  Company Number: US-009507513-1208USA005010

PATIENT
  Sex: Female
  Weight: 54.42 kg

DRUGS (4)
  1. ACTONEL [Suspect]
     Active Substance: RISEDRONATE SODIUM
     Indication: BONE DENSITY DECREASED
     Dosage: 35 MG, UNK
     Route: 048
     Dates: start: 2002, end: 2005
  2. FOSAMAX [Suspect]
     Active Substance: ALENDRONATE SODIUM
     Indication: OSTEOPENIA
     Dosage: UNK
     Route: 048
     Dates: start: 1999
  3. BONIVA [Suspect]
     Active Substance: IBANDRONATE SODIUM
     Indication: OSTEOPENIA
     Dosage: 150 MG, QM
     Route: 048
     Dates: start: 2005, end: 2010
  4. FOSAMAX [Suspect]
     Active Substance: ALENDRONATE SODIUM
     Dosage: 70 MG, UNK
     Route: 048
     Dates: end: 2002

REACTIONS (6)
  - Hysterectomy [Unknown]
  - Migraine [Unknown]
  - Oophorectomy bilateral [Unknown]
  - Femur fracture [Unknown]
  - Femur fracture [Unknown]
  - Osteoporosis [Unknown]

NARRATIVE: CASE EVENT DATE: 2010
